FAERS Safety Report 10812359 (Version 2)
Quarter: 2015Q1

REPORT INFORMATION
  Report Type: Spontaneous
  Country: US (occurrence: US)
  Receive Date: 20150218
  Receipt Date: 20150220
  Transmission Date: 20150721
  Serious: No
  Sender: FDA-Public Use
  Company Number: US-009507513-1502USA004894

PATIENT
  Age: 22 Year
  Sex: Female
  Weight: 68.27 kg

DRUGS (1)
  1. IMPLANON [Suspect]
     Active Substance: ETONOGESTREL
     Indication: CONTRACEPTION
     Dosage: 1 ROD UP TO THREE YEARS (EVERY 3 YEARS) IN LEFT ARM
     Route: 059
     Dates: start: 20130320

REACTIONS (9)
  - Adnexa uteri pain [Unknown]
  - Chest pain [Unknown]
  - Nausea [Unknown]
  - Implant site paraesthesia [Unknown]
  - Bladder discomfort [Unknown]
  - Headache [Unknown]
  - Abdominal pain [Unknown]
  - Implant site hypoaesthesia [Unknown]
  - Implant site swelling [Unknown]

NARRATIVE: CASE EVENT DATE: 20150127
